FAERS Safety Report 10160226 (Version 1)
Quarter: 2014Q2

REPORT INFORMATION
  Report Type: Spontaneous
  Country: US (occurrence: US)
  Receive Date: 20140508
  Receipt Date: 20140508
  Transmission Date: 20141212
  Serious: Yes (Other)
  Sender: FDA-Public Use
  Company Number: US-FRI-1000067107

PATIENT
  Age: 62 Year
  Sex: Female

DRUGS (1)
  1. VIIBRYD [Suspect]
     Dates: end: 2014

REACTIONS (7)
  - Impaired driving ability [Unknown]
  - Unevaluable event [Unknown]
  - Disturbance in attention [Unknown]
  - Headache [Unknown]
  - Confusional state [Unknown]
  - Asthenia [Unknown]
  - Gait disturbance [Unknown]
